FAERS Safety Report 11919052 (Version 1)
Quarter: 2016Q1

REPORT INFORMATION
  Report Type: Spontaneous
  Country: US (occurrence: US)
  Receive Date: 20160115
  Receipt Date: 20160115
  Transmission Date: 20160526
  Serious: Yes (Other)
  Sender: FDA-Public Use
  Company Number: US-BEH-2016057581

PATIENT
  Sex: Male
  Weight: 112 kg

DRUGS (24)
  1. FENTANYL. [Concomitant]
     Active Substance: FENTANYL
  2. MORPHINE SULFATE. [Concomitant]
     Active Substance: MORPHINE SULFATE
  3. PROVIGIL [Concomitant]
     Active Substance: MODAFINIL
  4. NEURONTIN [Concomitant]
     Active Substance: GABAPENTIN
  5. SOMA [Concomitant]
     Active Substance: CARISOPRODOL
  6. LUNESTA [Concomitant]
     Active Substance: ESZOPICLONE
  7. EPIPEN [Concomitant]
     Active Substance: EPINEPHRINE
  8. FLOVENT [Concomitant]
     Active Substance: FLUTICASONE PROPIONATE
  9. ADDERALL [Concomitant]
     Active Substance: AMPHETAMINE ASPARTATE\AMPHETAMINE SULFATE\DEXTROAMPHETAMINE SACCHARATE\DEXTROAMPHETAMINE SULFATE
  10. LORAZEPAM. [Concomitant]
     Active Substance: LORAZEPAM
  11. DIPHENHYDRAMINE. [Concomitant]
     Active Substance: DIPHENHYDRAMINE
  12. XOPENEX HFA [Concomitant]
     Active Substance: LEVALBUTEROL TARTRATE
  13. KLOR-CON [Concomitant]
     Active Substance: POTASSIUM CHLORIDE
  14. LASIX [Concomitant]
     Active Substance: FUROSEMIDE
  15. PERCOCET [Concomitant]
     Active Substance: ACETAMINOPHEN\OXYCODONE HYDROCHLORIDE
  16. OMNARIS [Concomitant]
     Active Substance: CICLESONIDE
  17. IMITREX [Concomitant]
     Active Substance: SUMATRIPTAN SUCCINATE
  18. TESTOSTERONE. [Concomitant]
     Active Substance: TESTOSTERONE
  19. ACCOLATE [Concomitant]
     Active Substance: ZAFIRLUKAST
  20. SEROQUEL [Concomitant]
     Active Substance: QUETIAPINE FUMARATE
  21. HIZENTRA [Suspect]
     Active Substance: HUMAN IMMUNOGLOBULIN G
     Indication: IMMUNODEFICIENCY COMMON VARIABLE
     Route: 058
  22. BUPIVACAINE [Concomitant]
     Active Substance: BUPIVACAINE
  23. MAXAIR AUTOHALER [Concomitant]
     Active Substance: PIRBUTEROL ACETATE
  24. LEXAPRO [Concomitant]
     Active Substance: ESCITALOPRAM OXALATE

REACTIONS (1)
  - Pneumonia [Unknown]
